FAERS Safety Report 26209438 (Version 1)
Quarter: 2025Q4

REPORT INFORMATION
  Report Type: Spontaneous
  Country: EU (occurrence: EU)
  Receive Date: 20251229
  Receipt Date: 20251229
  Transmission Date: 20260118
  Serious: Yes (Death, Hospitalization, Other)
  Sender: PFIZER
  Company Number: EU-PFIZER INC-PV202500149394

PATIENT
  Age: 82 Year
  Sex: Male

DRUGS (1)
  1. ELREXFIO [Suspect]
     Active Substance: ELRANATAMAB-BCMM
     Indication: Plasma cell myeloma
     Dosage: UNK
     Dates: start: 20250408, end: 20250422

REACTIONS (2)
  - Death [Fatal]
  - Femoral neck fracture [Unknown]

NARRATIVE: CASE EVENT DATE: 20250422
